FAERS Safety Report 17120691 (Version 1)
Quarter: 2019Q4

REPORT INFORMATION
  Report Type: Spontaneous
  Country: US (occurrence: US)
  Receive Date: 20191114
  Receipt Date: 20191114
  Transmission Date: 20200122
  Serious: Yes (Hospitalization)
  Sender: FDA-Public Use
  Company Number: None

PATIENT
  Sex: Male

DRUGS (8)
  1. EZETIMBE [Concomitant]
     Active Substance: EZETIMIBE
  2. CEPHALEXIN. [Concomitant]
     Active Substance: CEPHALEXIN
  3. REPATHA [Suspect]
     Active Substance: EVOLOCUMAB
     Indication: PRODUCT USED FOR UNKNOWN INDICATION
     Dosage: ?          OTHER FREQUENCY:EVERY 2 WEEKS;?
     Route: 058
     Dates: start: 20190610
  4. PRAVASTATIN. [Concomitant]
     Active Substance: PRAVASTATIN
  5. DOXYCYCLINE. [Concomitant]
     Active Substance: DOXYCYCLINE
  6. OLMESAMEDOX [Concomitant]
  7. AMLODIPINE [Concomitant]
     Active Substance: AMLODIPINE BESYLATE
  8. LINZESS [Concomitant]
     Active Substance: LINACLOTIDE

REACTIONS (1)
  - Head injury [None]
